FAERS Safety Report 23400325 (Version 2)
Quarter: 2024Q1

REPORT INFORMATION
  Report Type: Report from Study
  Country: CA (occurrence: CA)
  Receive Date: 20240115
  Receipt Date: 20240220
  Transmission Date: 20240410
  Serious: Yes (Hospitalization, Other)
  Sender: FDA-Public Use
  Company Number: CA-ABBVIE-5584400

PATIENT
  Age: 82 Year
  Sex: Male

DRUGS (1)
  1. LUPRON DEPOT [Suspect]
     Active Substance: LEUPROLIDE ACETATE
     Indication: Prostate cancer
     Route: 030
     Dates: start: 20200507

REACTIONS (10)
  - Lower limb fracture [Not Recovered/Not Resolved]
  - Metastases to bone [Unknown]
  - Metastasis [Unknown]
  - Metastases to prostate [Unknown]
  - Femur fracture [Unknown]
  - Fall [Not Recovered/Not Resolved]
  - Limb injury [Unknown]
  - Gait disturbance [Unknown]
  - Joint dislocation [Unknown]
  - Haemorrhage [Unknown]

NARRATIVE: CASE EVENT DATE: 20231201
